FAERS Safety Report 16019253 (Version 1)
Quarter: 2019Q1

REPORT INFORMATION
  Report Type: Spontaneous
  Country: US (occurrence: US)
  Receive Date: 20190228
  Receipt Date: 20190228
  Transmission Date: 20190418
  Serious: Yes (Death, Hospitalization)
  Sender: FDA-Public Use
  Company Number: US-TEVA-2019-US-1017231

PATIENT
  Age: 78 Year
  Sex: Male
  Weight: 68 kg

DRUGS (7)
  1. CLOTRIMAZOLE. [Concomitant]
     Active Substance: CLOTRIMAZOLE
     Route: 065
  2. CLOPIDOGREL [Concomitant]
     Active Substance: CLOPIDOGREL BISULFATE
     Route: 065
  3. SIRSPHERES [Concomitant]
     Indication: SKIN SQUAMOUS CELL CARCINOMA METASTATIC
     Route: 013
  4. TIMOLOL. [Concomitant]
     Active Substance: TIMOLOL
     Route: 065
  5. CAPECITABINE. [Suspect]
     Active Substance: CAPECITABINE
     Indication: SKIN SQUAMOUS CELL CARCINOMA METASTATIC
     Dosage: 2000MG IN THE MORNING AND 1500MG IN THE EVENING FOR 14 DAYS ON AND SEVEN DAYS OFF
     Route: 048
  6. URIDINE TRIACETATE [Suspect]
     Active Substance: URIDINE TRIACETATE
     Indication: TOXICITY TO VARIOUS AGENTS
     Route: 048
  7. MEMANTINE. [Concomitant]
     Active Substance: MEMANTINE
     Route: 065

REACTIONS (13)
  - Neutropenia [Fatal]
  - Toxicity to various agents [Fatal]
  - Bacteraemia [Fatal]
  - Mucosal inflammation [Unknown]
  - Dementia [Unknown]
  - Dysphagia [Unknown]
  - Off label use [Unknown]
  - Septic shock [Fatal]
  - Thrombocytopenia [Fatal]
  - Delirium [Unknown]
  - Diarrhoea [Unknown]
  - Skin ulcer [Unknown]
  - Dermatitis [Unknown]
